FAERS Safety Report 18049070 (Version 1)
Quarter: 2020Q3

REPORT INFORMATION
  Report Type: Spontaneous
  Country: US (occurrence: US)
  Receive Date: 20200721
  Receipt Date: 20200721
  Transmission Date: 20201103
  Serious: Yes (Hospitalization)
  Sender: FDA-Public Use
  Company Number: US-STRIDES ARCOLAB LIMITED-2020SP008228

PATIENT
  Age: 55 Year
  Sex: Male

DRUGS (3)
  1. GENVOYA [Interacting]
     Active Substance: COBICISTAT\ELVITEGRAVIR\EMTRICITABINE\TENOFOVIR ALAFENAMIDE FUMARATE
     Indication: HIV INFECTION
     Dosage: UNK
     Route: 065
  2. TRIAMCINOLONE ACETONIDE. [Suspect]
     Active Substance: TRIAMCINOLONE ACETONIDE
     Indication: SYNOVIAL CYST
     Dosage: UNK
     Route: 014
  3. FLUTICASONE PROPIONATE. [Interacting]
     Active Substance: FLUTICASONE PROPIONATE
     Indication: NASAL CONGESTION
     Dosage: UNK, NASAL SPRAY
     Route: 045

REACTIONS (13)
  - Pulmonary embolism [Unknown]
  - Cushing^s syndrome [Unknown]
  - Skin ulcer [Unknown]
  - Hypothalamic pituitary adrenal axis suppression [Unknown]
  - Drug interaction [Unknown]
  - Weight increased [Unknown]
  - Plethoric face [Recovered/Resolved]
  - Skin striae [Recovered/Resolved]
  - Cushingoid [Recovered/Resolved]
  - Localised infection [Unknown]
  - Deep vein thrombosis [Unknown]
  - Dyspnoea [Recovered/Resolved]
  - Contusion [Recovered/Resolved]
